FAERS Safety Report 25876796 (Version 1)
Quarter: 2025Q4

REPORT INFORMATION
  Report Type: Spontaneous
  Country: EU (occurrence: EU)
  Receive Date: 20251003
  Receipt Date: 20251003
  Transmission Date: 20260118
  Serious: Yes (Hospitalization, Other)
  Sender: AUROBINDO
  Company Number: EU-TEVA-2019-IT-1105142

PATIENT
  Age: 23 Year
  Sex: Male
  Weight: 60 kg

DRUGS (6)
  1. MYCOPHENOLIC ACID [Suspect]
     Active Substance: MYCOPHENOLIC ACID
     Indication: Immunosuppression
     Dosage: UNK
     Route: 065
  2. MYCOPHENOLIC ACID [Suspect]
     Active Substance: MYCOPHENOLIC ACID
     Indication: Immunosuppressant drug therapy
  3. TACROLIMUS [Suspect]
     Active Substance: TACROLIMUS
     Indication: Immunosuppression
     Dosage: UNK
     Route: 065
  4. TACROLIMUS [Suspect]
     Active Substance: TACROLIMUS
     Indication: Immunosuppressant drug therapy
  5. THYMOCYTE IMMUNE GLOBULIN NOS [Suspect]
     Active Substance: THYMOCYTE IMMUNE GLOBULIN NOS
     Indication: Immunosuppression
     Dosage: UNK
     Route: 065
  6. THYMOCYTE IMMUNE GLOBULIN NOS [Suspect]
     Active Substance: THYMOCYTE IMMUNE GLOBULIN NOS
     Indication: Immunosuppressant drug therapy

REACTIONS (9)
  - Cytokine release syndrome [Recovered/Resolved]
  - Multiple organ dysfunction syndrome [Recovering/Resolving]
  - Renal failure [Recovered/Resolved]
  - Metabolic disorder [Recovered/Resolved]
  - Acute respiratory distress syndrome [Recovered/Resolved]
  - Cardiac dysfunction [Recovered/Resolved]
  - Lactic acidosis [Recovered/Resolved]
  - Renal impairment [Recovered/Resolved]
  - Haemodynamic instability [Recovered/Resolved]
